FAERS Safety Report 16011947 (Version 1)
Quarter: 2019Q1

REPORT INFORMATION
  Report Type: Spontaneous
  Country: US (occurrence: US)
  Receive Date: 20190226
  Receipt Date: 20190226
  Transmission Date: 20190418
  Serious: Yes (Disabling, Other)
  Sender: FDA-Public Use
  Company Number: None

PATIENT
  Age: 68 Year
  Sex: Female
  Weight: 87.75 kg

DRUGS (6)
  1. COQ10 [Concomitant]
     Active Substance: UBIDECARENONE
  2. TYLENOL [Concomitant]
     Active Substance: ACETAMINOPHEN
  3. ULTRAM [Concomitant]
     Active Substance: TRAMADOL HYDROCHLORIDE
  4. MULTI VITAMIN [Concomitant]
     Active Substance: VITAMINS
  5. LISINOPRIL 10 MG TAB [Suspect]
     Active Substance: LISINOPRIL
     Indication: HYPERTENSION
     Dosage: ?          QUANTITY:1 TABLET(S);?
     Route: 048
     Dates: start: 20190206, end: 20190223
  6. COSAMIN DS [Concomitant]

REACTIONS (5)
  - Gait disturbance [None]
  - Hyperhidrosis [None]
  - Dizziness [None]
  - Vertigo [None]
  - Myalgia [None]

NARRATIVE: CASE EVENT DATE: 20190222
